FAERS Safety Report 9204515 (Version 2)
Quarter: 2013Q3

REPORT INFORMATION
  Report Type: Report from Study
  Country: NL (occurrence: NL)
  Receive Date: 20130402
  Receipt Date: 20130924
  Transmission Date: 20140515
  Serious: Yes (Hospitalization)
  Sender: FDA-Public Use
  Company Number: NL-ASTRAZENECA-2013SE21069

PATIENT
  Age: 3 Month
  Sex: Female
  Weight: 5.1 kg

DRUGS (3)
  1. SYNAGIS [Suspect]
     Indication: PREMATURE BABY
     Route: 030
     Dates: start: 20130220, end: 20130220
  2. SYNAGIS [Suspect]
     Indication: PREMATURE BABY
     Route: 030
     Dates: start: 20130321
  3. ANTI-INFLUENZA MEDICATION [Concomitant]

REACTIONS (1)
  - Dyspnoea [Recovered/Resolved]
